FAERS Safety Report 6766040-2 (Version None)
Quarter: 2010Q2

REPORT INFORMATION
  Report Type: 
  Country: None (occurrence: None)
  Receive Date: 20100611
  Receipt Date: 20100602
  Transmission Date: 20101027
  Serious: Yes (Other)
  Sender: FDA-Public Use
  Company Number: A0864200A

PATIENT
  Sex: Male
  Weight: 78 kg

DRUGS (2)
  1. AMOXIL [Suspect]
     Indication: PHARYNGITIS
     Dosage: 500MG THREE TIMES PER DAY
     Dates: start: 20100528, end: 20100601
  2. UNKNOWN MEDICATION [Concomitant]
     Dates: start: 20100528, end: 20100531

REACTIONS (3)
  - ABDOMINAL PAIN [None]
  - DIARRHOEA HAEMORRHAGIC [None]
  - FLATULENCE [None]
